FAERS Safety Report 12250578 (Version 1)
Quarter: 2016Q2

REPORT INFORMATION
  Report Type: Spontaneous
  Country: US (occurrence: US)
  Receive Date: 20160408
  Receipt Date: 20160408
  Transmission Date: 20160815
  Serious: Yes (Hospitalization, Other)
  Sender: FDA-Public Use
  Company Number: US-009507513-1604USA005930

PATIENT
  Sex: Male
  Weight: 136 kg

DRUGS (16)
  1. BYDUREON [Suspect]
     Active Substance: EXENATIDE
     Indication: BLOOD GLUCOSE
     Dosage: 10 MG  TAKING IT FOR SUGAR, A SHOT ONCE A WEEK
  2. LYRICA [Suspect]
     Active Substance: PREGABALIN
     Dosage: 50 MG, BID
     Dates: start: 201512
  3. GABAPENTIN. [Suspect]
     Active Substance: GABAPENTIN
     Dosage: 800 MG, QID (400 MG IN THE MORNING AND IN THE AFTERNOON)
  4. WARFARIN [Concomitant]
     Active Substance: WARFARIN
     Indication: ANTICOAGULANT THERAPY
     Dosage: 5 MG, QD
  5. PRINIVIL [Suspect]
     Active Substance: LISINOPRIL
     Indication: BLOOD PRESSURE MEASUREMENT
     Dosage: 40 MG, QD
     Route: 048
  6. SERTRALINE HYDROCHLORIDE. [Suspect]
     Active Substance: SERTRALINE HYDROCHLORIDE
  7. METFORMIN [Suspect]
     Active Substance: METFORMIN HYDROCHLORIDE
     Dosage: 100 MG, BID (NON AZ PRODUCT)
  8. BISOPROLOL [Suspect]
     Active Substance: BISOPROLOL
     Indication: BLOOD PRESSURE MEASUREMENT
     Dosage: 10 MG, QD
  9. HYDROCODONE [Concomitant]
     Active Substance: HYDROCODONE
     Indication: PAIN
     Dosage: 10 MG/325 MCG OVER FOUR HOURS (Q4H)
     Route: 065
  10. VANCOMYCIN [Suspect]
     Active Substance: VANCOMYCIN
     Dosage: 500 MG, UNK
  11. LYRICA [Suspect]
     Active Substance: PREGABALIN
     Dosage: 150 MG, UNK
     Dates: start: 201512
  12. DULOXETINE HYDROCHLORIDE. [Suspect]
     Active Substance: DULOXETINE HYDROCHLORIDE
     Dosage: 60 MG, UNK
  13. CUBICIN [Suspect]
     Active Substance: DAPTOMYCIN
     Dosage: 1 MG, QD
     Route: 042
  14. FLUORACILO [Suspect]
     Active Substance: FLUOROURACIL
     Dosage: 5 %, BID (EVERY MORNING AND NIGHT)
  15. TORSEMIDE. [Concomitant]
     Active Substance: TORSEMIDE
     Dosage: 20 MG, UNK
  16. POTASSIUM (UNSPECIFIED) [Concomitant]
     Active Substance: POTASSIUM
     Dosage: 10 MEQ, UNK
     Route: 065

REACTIONS (9)
  - Drug dose omission [Unknown]
  - Feeling abnormal [Unknown]
  - Suicidal behaviour [Unknown]
  - Arthralgia [Unknown]
  - Localised infection [Unknown]
  - Malaise [Unknown]
  - Blister [Unknown]
  - Intentional product misuse [Unknown]
  - Muscle disorder [Unknown]

NARRATIVE: CASE EVENT DATE: 2015
